FAERS Safety Report 23990912 (Version 1)
Quarter: 2024Q2

REPORT INFORMATION
  Report Type: Spontaneous
  Country: JP (occurrence: JP)
  Receive Date: 20240619
  Receipt Date: 20240619
  Transmission Date: 20240715
  Serious: Yes (Other)
  Sender: FDA-Public Use
  Company Number: JP-ABBVIE-5806826

PATIENT
  Age: 82 Year
  Sex: Female

DRUGS (4)
  1. ALPHAGAN P [Suspect]
     Active Substance: BRIMONIDINE TARTRATE
     Indication: Glaucoma
     Route: 047
     Dates: start: 20210201
  2. FLAVIN ADENINE DINUCLEOTIDE [Concomitant]
     Active Substance: FLAVIN ADENINE DINUCLEOTIDE
     Indication: Product used for unknown indication
     Dosage: (FLAVIN ADENINE DINUCLEOTIDE SODIUM) BOTH EYES OPHTHALMIC? OPHTHALMIC OINTMENT
     Route: 047
  3. ZOVIRAX [Concomitant]
     Active Substance: ACYCLOVIR
     Indication: Ophthalmic herpes simplex
     Dosage: OPHTHALMIC OINTMENT
  4. OMIDENEPAG ISOPROPYL [Concomitant]
     Active Substance: OMIDENEPAG ISOPROPYL
     Indication: Product used for unknown indication
     Dosage: 0.002% (OMIDENEPAG ISOPROPYL) BOTH EYES OPHTHALMIC? OPHTHALMIC SOLUTION
     Route: 047

REACTIONS (2)
  - Corneal opacity [Unknown]
  - Ophthalmic herpes simplex [Unknown]

NARRATIVE: CASE EVENT DATE: 20230501
